FAERS Safety Report 5302162-0 (Version None)
Quarter: 2007Q2

REPORT INFORMATION
  Report Type: 
  Country: None (occurrence: None)
  Receive Date: 20070419
  Receipt Date: 20070412
  Transmission Date: 20071010
  Serious: Yes (Death, Hospitalization)
  Sender: FDA-Public Use
  Company Number: HQWYE154320FEB07

PATIENT
  Sex: Male
  Weight: 55 kg

DRUGS (14)
  1. MYLOTARG [Suspect]
     Indication: ACUTE MYELOID LEUKAEMIA
     Route: 041
     Dates: start: 20061215, end: 20061215
  2. MYLOTARG [Suspect]
     Route: 041
     Dates: start: 20070111, end: 20070111
  3. MAGNESIUM OXIDE [Concomitant]
     Indication: CONSTIPATION
     Dosage: 3 G DAILY
     Route: 048
     Dates: start: 20060803, end: 20070124
  4. SUNRYTHM [Concomitant]
     Indication: ARRHYTHMIA
     Dosage: 75 MG DAILY
     Route: 048
     Dates: start: 20060810, end: 20070201
  5. SELBEX [Concomitant]
     Indication: PROPHYLAXIS
     Dosage: 1.5 G DAILY
     Route: 048
     Dates: start: 20060714, end: 20070201
  6. FUNGUARD [Concomitant]
     Indication: PROPHYLAXIS
     Dosage: 100 MG DAILY
     Route: 041
     Dates: start: 20070120, end: 20070126
  7. BAKTAR [Concomitant]
     Indication: PROPHYLAXIS
     Dosage: 1 G DAILY
     Route: 048
     Dates: start: 20060714, end: 20070201
  8. HARNAL [Concomitant]
     Indication: BENIGN PROSTATIC HYPERPLASIA
     Dosage: 0.4 MG DAILY
     Route: 048
     Dates: start: 20060804, end: 20070201
  9. FLUCONAZOLE [Concomitant]
     Indication: PROPHYLAXIS
     Dosage: 200 MG DAILY
     Route: 048
     Dates: start: 20060725, end: 20070124
  10. FLUCONAZOLE [Concomitant]
     Dosage: 400 MG DAILY
     Route: 048
     Dates: start: 20070112, end: 20070120
  11. POLYMYXIN B SULFATE [Concomitant]
     Indication: PROPHYLAXIS
     Dosage: 3.0 MIU DAILY
     Route: 048
     Dates: start: 20060725, end: 20070124
  12. TAKEPRON [Concomitant]
     Indication: PROPHYLAXIS
     Dosage: 15 MG DAILY
     Route: 048
     Dates: start: 20070106, end: 20070201
  13. FAMOTIDINE [Concomitant]
     Indication: PROPHYLAXIS
     Dosage: 40 MG DAILY
     Route: 048
     Dates: start: 20060714, end: 20070124
  14. NAPROXEN [Concomitant]
     Indication: TUMOUR ASSOCIATED FEVER
     Dosage: 600 MG DAILY
     Route: 048
     Dates: start: 20060810, end: 20070124

REACTIONS (8)
  - DISSEMINATED INTRAVASCULAR COAGULATION [None]
  - GASTROINTESTINAL HAEMORRHAGE [None]
  - HAEMORRHAGIC DIATHESIS [None]
  - HEPATIC FUNCTION ABNORMAL [None]
  - RENAL FAILURE [None]
  - SEPSIS [None]
  - SEPTIC SHOCK [None]
  - SUBDURAL HAEMORRHAGE [None]
